FAERS Safety Report 24965353 (Version 2)
Quarter: 2025Q1

REPORT INFORMATION
  Report Type: Spontaneous
  Country: JP (occurrence: JP)
  Receive Date: 20250213
  Receipt Date: 20250318
  Transmission Date: 20250409
  Serious: Yes (Other)
  Sender: BAYER HEALTHCARE PHARMACEUTICALS INC.
  Company Number: JP-BAYER-2025A020428

PATIENT
  Age: 46 Year
  Sex: Female
  Weight: 55 kg

DRUGS (7)
  1. ADEMPAS [Suspect]
     Active Substance: RIOCIGUAT
     Indication: Pulmonary hypertension
     Dosage: DAILY DOSE 6 MG
     Route: 048
  2. SELEXIPAG [Concomitant]
     Active Substance: SELEXIPAG
     Dosage: DAILY DOSE .8 MG
  3. SELEXIPAG [Concomitant]
     Active Substance: SELEXIPAG
     Dosage: DAILY DOSE 1.6 MG
  4. DOBUTAMINE [Concomitant]
     Active Substance: DOBUTAMINE HYDROCHLORIDE
  5. PIMOBENDAN [Concomitant]
     Active Substance: PIMOBENDAN
     Dosage: DAILY DOSE 5 MG
  6. WARFARIN POTASSIUM [Concomitant]
     Active Substance: WARFARIN POTASSIUM
     Indication: Anticoagulant therapy
     Route: 048
  7. PROSTIN E2 [Concomitant]
     Active Substance: DINOPROSTONE
     Indication: Pulmonary hypertension
     Route: 048
     Dates: start: 20220915

REACTIONS (3)
  - Pulmonary oedema [None]
  - Pulmonary oedema [None]
  - Haemoptysis [Recovering/Resolving]

NARRATIVE: CASE EVENT DATE: 20220914
